FAERS Safety Report 7584168-4 (Version None)
Quarter: 2011Q2

REPORT INFORMATION
  Report Type: 
  Country: None (occurrence: None)
  Receive Date: 20110623
  Receipt Date: 20110609
  Transmission Date: 20111010
  Serious: Yes (Other)
  Sender: FDA-Public Use
  Company Number: AUR-APL-2011-02751

PATIENT
  Age: 76 Year
  Sex: Male
  Weight: 79.8331 kg

DRUGS (1)
  1. SIMVASTATIN [Suspect]
     Indication: BLOOD CHOLESTEROL INCREASED
     Dosage: (80 MG), PER ORAL
     Route: 048
     Dates: end: 20110528

REACTIONS (3)
  - PAIN IN EXTREMITY [None]
  - SUDDEN ONSET OF SLEEP [None]
  - PROSTATE CANCER [None]
